FAERS Safety Report 6206585-7 (Version None)
Quarter: 2009Q2

REPORT INFORMATION
  Report Type: 
  Country: None (occurrence: None)
  Receive Date: 20090528
  Receipt Date: 20090521
  Transmission Date: 20091009
  Serious: Yes (Hospitalization)
  Sender: FDA-Public Use
  Company Number: JP-B.I. PHARMACEUTICALS,INC./RIDGEFIELD-2009-BP-05075NB

PATIENT
  Sex: Male
  Weight: 53.3 kg

DRUGS (3)
  1. MICARDIS [Suspect]
     Indication: HYPERTENSION
     Dosage: 40MG
     Route: 048
     Dates: start: 20070326, end: 20090112
  2. REGPARA [Concomitant]
     Dosage: 50MG
     Route: 048
     Dates: start: 20050301
  3. ARTIST [Concomitant]
     Indication: HYPERTENSION
     Dosage: 1.25MG
     Route: 048
     Dates: start: 20050301

REACTIONS (4)
  - BLOOD PRESSURE DECREASED [None]
  - CARDIAC FAILURE CONGESTIVE [None]
  - PNEUMONIA [None]
  - PULMONARY OEDEMA [None]
